FAERS Safety Report 7471446-2 (Version None)
Quarter: 2011Q2

REPORT INFORMATION
  Report Type: 
  Country: None (occurrence: None)
  Receive Date: 20110511
  Receipt Date: 20110503
  Transmission Date: 20111010
  Serious: Yes (Death, Hospitalization)
  Sender: FDA-Public Use
  Company Number: 2007BI008968

PATIENT
  Age: 59 Year
  Sex: Female

DRUGS (1)
  1. TYSABRI [Suspect]
     Indication: MULTIPLE SCLEROSIS
     Route: 042
     Dates: start: 20061017, end: 20070213

REACTIONS (10)
  - PYREXIA [None]
  - PATHOGEN RESISTANCE [None]
  - INJURY [None]
  - MULTIPLE SCLEROSIS [None]
  - ROAD TRAFFIC ACCIDENT [None]
  - URINARY TRACT INFECTION [None]
  - MUSCLE SPASMS [None]
  - CONFUSIONAL STATE [None]
  - IMMUNE SYSTEM DISORDER [None]
  - UROSEPSIS [None]
